FAERS Safety Report 19494245 (Version 1)
Quarter: 2021Q3

REPORT INFORMATION
  Report Type: Spontaneous
  Country: GB (occurrence: GB)
  Receive Date: 20210706
  Receipt Date: 20210706
  Transmission Date: 20211014
  Serious: Yes (Other)
  Sender: FDA-Public Use
  Company Number: GB-AUROBINDO-AUR-APL-2021-027943

PATIENT
  Age: 40 Year
  Sex: Female
  Weight: 90 kg

DRUGS (2)
  1. MEZAVANT XL [Concomitant]
     Active Substance: MESALAMINE
     Indication: ILL-DEFINED DISORDER
     Dosage: UNK
     Route: 065
  2. CLARITHROMYCIN. [Suspect]
     Active Substance: CLARITHROMYCIN
     Indication: INFECTED CYST
     Dosage: 500 MILLIGRAM, TWO TIMES A DAY
     Route: 048
     Dates: start: 20210602

REACTIONS (2)
  - Insomnia [Recovered/Resolved]
  - Candida infection [Recovering/Resolving]

NARRATIVE: CASE EVENT DATE: 20210604
